FAERS Safety Report 8296384-7 (Version None)
Quarter: 2012Q2

REPORT INFORMATION
  Report Type: 
  Country: None (occurrence: None)
  Receive Date: 20120418
  Receipt Date: 20120406
  Transmission Date: 20120825
  Serious: Yes (Hospitalization)
  Sender: FDA-Public Use
  Company Number: US-B.I. PHARMACEUTICALS,INC./RIDGEFIELD-2012-BP-06503BP

PATIENT
  Age: 6 Decade
  Sex: Male

DRUGS (3)
  1. COUMADIN [Suspect]
     Dates: end: 20120301
  2. PRADAXA [Suspect]
     Dosage: 150 MG
     Route: 048
     Dates: end: 20120301
  3. ASPIRIN [Suspect]
     Dates: end: 20120301

REACTIONS (1)
  - ABDOMINAL WALL HAEMORRHAGE [None]
